FAERS Safety Report 8816197 (Version 1)
Quarter: 2012Q4

REPORT INFORMATION
  Report Type: 
  Country: US (occurrence: US)
  Receive Date: 20120929
  Receipt Date: 20120929
  Transmission Date: 20130627
  Serious: No
  Sender: FDA-Public Use
  Company Number: US-009507513-2012SP001970

PATIENT
  Age: 10 Year
  Sex: Female
  Weight: 32.66 kg

DRUGS (4)
  1. MIRALAX [Suspect]
     Indication: CONSTIPATION
     Dosage: 8.5 g, QD
     Route: 048
     Dates: start: 201105
  2. MIRALAX [Suspect]
     Indication: MEDICAL OBSERVATION
     Dosage: 8.5 g, QD
     Route: 048
     Dates: start: 20111218, end: 20111219
  3. ZYRTEC [Concomitant]
     Indication: SEASONAL ALLERGY
  4. BENEFIBER [Concomitant]
     Indication: CONSTIPATION

REACTIONS (4)
  - Product tampering [Unknown]
  - Incorrect drug administration duration [Unknown]
  - Drug administered to patient of inappropriate age [Unknown]
  - Off label use [Unknown]
